FAERS Safety Report 5544572-2 (Version None)
Quarter: 2007Q4

REPORT INFORMATION
  Report Type: 
  Country: None (occurrence: None)
  Receive Date: 20071210
  Receipt Date: 20071203
  Transmission Date: 20080405
  Serious: Yes (Hospitalization)
  Sender: FDA-Public Use
  Company Number: US-BRISTOL-MYERS SQUIBB COMPANY-13923065

PATIENT
  Age: 72 Year
  Sex: Male
  Weight: 81 kg

DRUGS (12)
  1. CETUXIMAB [Suspect]
     Indication: COLORECTAL CANCER METASTATIC
     Dosage: DAY 1, 8, 15 AND 22.
     Route: 042
     Dates: start: 20070718, end: 20070913
  2. DOXYCYCLINE [Suspect]
  3. BEVACIZUMAB [Suspect]
     Indication: COLORECTAL CANCER METASTATIC
     Dosage: DAY 1 AND 15
     Route: 042
     Dates: start: 20070718, end: 20070913
  4. FLUOROURACIL [Suspect]
     Indication: COLORECTAL CANCER METASTATIC
     Dosage: INFUSION STARTED FROM 18/JUL/07-15/SEP/07.
     Route: 040
     Dates: start: 20070718, end: 20070915
  5. LEUCOVORIN CALCIUM [Suspect]
     Indication: COLORECTAL CANCER METASTATIC
     Dosage: DAY 1 AND 15
     Route: 042
     Dates: start: 20070718, end: 20070913
  6. FLOMAX [Concomitant]
     Indication: BENIGN PROSTATIC HYPERPLASIA
     Route: 048
     Dates: start: 20070309
  7. PREVACID [Concomitant]
     Indication: ULCER
     Dates: start: 20070503
  8. LISINOPRIL [Concomitant]
     Indication: HYPERTENSION
     Route: 048
     Dates: start: 20070419
  9. RESTORIL [Concomitant]
     Indication: INSOMNIA
     Route: 048
     Dates: start: 20070427
  10. REMERON [Concomitant]
     Indication: DEPRESSION
     Route: 048
     Dates: start: 20070718
  11. COMPAZINE [Concomitant]
     Indication: NAUSEA
     Route: 048
     Dates: start: 20070718
  12. ELIDEL [Concomitant]
     Indication: RASH
     Route: 061
     Dates: start: 20070725

REACTIONS (3)
  - DIARRHOEA [None]
  - OESOPHAGITIS ULCERATIVE [None]
  - RASH [None]
